FAERS Safety Report 10255650 (Version 1)
Quarter: 2014Q2

REPORT INFORMATION
  Report Type: Spontaneous
  Country: US (occurrence: None)
  Receive Date: 20140522
  Receipt Date: 20140522
  Transmission Date: 20141212
  Serious: No
  Sender: FDA-Public Use
  Company Number: 1000054093

PATIENT
  Age: 79 Year
  Sex: Male

DRUGS (1)
  1. TUDORZA PRESSAIR (ACLIDINIUM BROMIDE) (POWDER) [Suspect]
     Dosage: 400MCG,(400MCG, 2 IN 1 D,  RESPIRATORY (INHALATION)
     Route: 055

REACTIONS (7)
  - Vision blurred [None]
  - Malaise [None]
  - Eye irritation [None]
  - Rhinorrhoea [None]
  - Abdominal discomfort [None]
  - Feeling hot [None]
  - Vitreous floaters [None]
